FAERS Safety Report 9066195 (Version 1)
Quarter: 2013Q1

REPORT INFORMATION
  Report Type: Report from Study
  Country: US (occurrence: US)
  Receive Date: 20130131
  Receipt Date: 20130131
  Transmission Date: 20140127
  Serious: No
  Sender: FDA-Public Use
  Company Number: US-ABBOTT-12P-163-1016864-00

PATIENT
  Age: 49 Year
  Sex: Female

DRUGS (5)
  1. HUMIRA [Suspect]
     Indication: PSORIATIC ARTHROPATHY
     Route: 058
     Dates: start: 20121109
  2. LEVOTHYROXINE [Concomitant]
     Indication: HYPOTHYROIDISM
     Dosage: DAILY
     Route: 048
  3. CELEBREX [Concomitant]
     Indication: PAIN
     Dosage: DAILY
     Route: 048
  4. ULTRACET [Concomitant]
     Indication: PAIN
     Dosage: 37.5/325MG HALF A TABLET AS NEEDED
     Route: 048
  5. XANAX [Concomitant]
     Indication: ANXIETY
     Dosage: DAILY
     Route: 048

REACTIONS (8)
  - Malaise [Not Recovered/Not Resolved]
  - Bronchitis [Not Recovered/Not Resolved]
  - Injection site erythema [Recovered/Resolved]
  - Injection site pruritus [Recovered/Resolved]
  - Injection site erythema [Not Recovered/Not Resolved]
  - Injection site pruritus [Unknown]
  - Oropharyngeal pain [Unknown]
  - Nasopharyngitis [Unknown]
